FAERS Safety Report 7469275-9 (Version None)
Quarter: 2011Q2

REPORT INFORMATION
  Report Type: 
  Country: None (occurrence: None)
  Receive Date: 20110506
  Receipt Date: 20110506
  Transmission Date: 20111010
  Serious: Yes (Other)
  Sender: FDA-Public Use
  Company Number: None

PATIENT
  Age: 58 Year
  Sex: 0
  Weight: 72.7 kg

DRUGS (1)
  1. CLARITIN [Suspect]
     Indication: SINUS DISORDER
     Dosage: ONE TABLET ONE/DAY
     Dates: start: 20070709

REACTIONS (1)
  - VITREOUS FLOATERS [None]
